FAERS Safety Report 24439283 (Version 3)
Quarter: 2024Q4

REPORT INFORMATION
  Report Type: Spontaneous
  Country: IN (occurrence: IN)
  Receive Date: 20241015
  Receipt Date: 20241217
  Transmission Date: 20250115
  Serious: Yes (Other)
  Sender: PFIZER
  Company Number: IN-PFIZER INC-PV202400104158

PATIENT
  Age: 52 Year
  Sex: Female

DRUGS (2)
  1. LORLATINIB [Suspect]
     Active Substance: LORLATINIB
     Indication: Lung adenocarcinoma stage IV
     Dosage: 100 MG, 1X/DAY (WITH OR WITHOUT FOOD, SWALLOW TABLET WHOLE, DO NOT CHEW, CRUSH) X 4 WEEKS
     Route: 048
     Dates: start: 20240707
  2. PANTOPRAZOLE SODIUM [Concomitant]
     Active Substance: PANTOPRAZOLE SODIUM
     Indication: Gastritis
     Dosage: 40 MG, 1X/DAY (BEFORE MEALS FOR 2 WEEKS THEN AS AND WHEN REQUIRED)
     Route: 048

REACTIONS (9)
  - Appendicitis perforated [Unknown]
  - Hydronephrosis [Unknown]
  - Varicose vein [Unknown]
  - Peripheral venous disease [Unknown]
  - Blood triglycerides increased [Unknown]
  - Blood cholesterol increased [Not Recovered/Not Resolved]
  - Oedema peripheral [Recovered/Resolved]
  - Cardiomegaly [Unknown]
  - Proteinuria [Unknown]

NARRATIVE: CASE EVENT DATE: 20240719
